FAERS Safety Report 4487394-6 (Version None)
Quarter: 2004Q4

REPORT INFORMATION
  Report Type: 
  Country: None (occurrence: None)
  Receive Date: 20041027
  Receipt Date: 20041019
  Transmission Date: 20050328
  Serious: Yes (Disabling)
  Sender: FDA-Public Use
  Company Number: US-MERCK-0410USA02953

PATIENT
  Age: 49 Year
  Sex: Male

DRUGS (15)
  1. VIOXX [Suspect]
     Indication: BACK PAIN
     Route: 048
     Dates: end: 20040101
  2. OXYCONTIN [Concomitant]
     Route: 065
  3. VICODIN [Concomitant]
     Route: 065
  4. VALIUM [Concomitant]
     Route: 065
  5. ADVAIR DISKUS 100/50 [Concomitant]
     Route: 065
  6. COMBIVENT [Concomitant]
     Route: 065
  7. VASERETIC [Concomitant]
     Route: 048
  8. IMITREX [Concomitant]
     Route: 065
  9. LORATADINE [Concomitant]
     Route: 065
  10. LIDODERM [Concomitant]
     Route: 065
  11. ALLEGRA [Concomitant]
     Route: 065
  12. CYCLOBENZAPRINE HYDROCHLORIDE [Concomitant]
     Route: 065
  13. NICOTROL [Concomitant]
     Route: 065
  14. HYDROCORTISONE [Concomitant]
     Route: 065
  15. CICLOVEN [Concomitant]
     Route: 065

REACTIONS (3)
  - CHEST PAIN [None]
  - OVERDOSE [None]
  - PAIN IN EXTREMITY [None]
